FAERS Safety Report 14990184 (Version 1)
Quarter: 2018Q2

REPORT INFORMATION
  Report Type: Spontaneous
  Country: US (occurrence: US)
  Receive Date: 20180608
  Receipt Date: 20180608
  Transmission Date: 20180711
  Serious: No
  Sender: FDA-Public Use
  Company Number: US-ROCHE-2043788

PATIENT
  Age: 37 Year
  Sex: Female
  Weight: 86.71 kg

DRUGS (1)
  1. ACTEMRA [Suspect]
     Active Substance: TOCILIZUMAB
     Indication: RHEUMATOID ARTHRITIS
     Route: 058
     Dates: start: 2017

REACTIONS (6)
  - Device defective [Unknown]
  - Memory impairment [Unknown]
  - Procedural anxiety [Not Recovered/Not Resolved]
  - Disturbance in attention [Unknown]
  - Mental fatigue [Unknown]
  - Burning sensation [Not Recovered/Not Resolved]

NARRATIVE: CASE EVENT DATE: 20171214
